FAERS Safety Report 5149353-X (Version None)
Quarter: 2006Q4

REPORT INFORMATION
  Report Type: 
  Country: None (occurrence: None)
  Receive Date: 20061113
  Receipt Date: 20051115
  Transmission Date: 20070319
  Serious: No
  Sender: FDA-Public Use
  Company Number: 425131

PATIENT

DRUGS (1)
  1. COREG [Suspect]
     Indication: DRUG USE FOR UNKNOWN INDICATION
     Route: 048

REACTIONS (1)
  - HEADACHE [None]
